FAERS Safety Report 8569658-X (Version None)
Quarter: 2012Q3

REPORT INFORMATION
  Report Type: 
  Country: None (occurrence: None)
  Receive Date: 20120803
  Receipt Date: 20120702
  Transmission Date: 20120928
  Serious: No
  Sender: FDA-Public Use
  Company Number: US-ABBOTT-12P-163-0952034-00

PATIENT
  Sex: Female
  Weight: 99.88 kg

DRUGS (3)
  1. LIVALO [Concomitant]
     Indication: PRODUCT USED FOR UNKNOWN INDICATION
  2. NIASPAN [Suspect]
     Indication: LOW DENSITY LIPOPROTEIN INCREASED
     Dosage: AT NIGHT
     Route: 048
     Dates: start: 20120621
  3. LEVOTHYROXINE SODIUM [Concomitant]
     Indication: PRODUCT USED FOR UNKNOWN INDICATION

REACTIONS (3)
  - POLLAKIURIA [None]
  - HYPERHIDROSIS [None]
  - MIDDLE INSOMNIA [None]
